FAERS Safety Report 23914455 (Version 1)
Quarter: 2024Q2

REPORT INFORMATION
  Report Type: Spontaneous
  Country: FR (occurrence: FR)
  Receive Date: 20240529
  Receipt Date: 20240529
  Transmission Date: 20240716
  Serious: Yes (Hospitalization)
  Sender: FDA-Public Use
  Company Number: None

PATIENT
  Age: 77 Year
  Sex: Female
  Weight: 50.3 kg

DRUGS (7)
  1. DAPTOMYCIN [Suspect]
     Active Substance: DAPTOMYCIN
     Indication: Postoperative wound infection
     Dosage: 500 MILLIGRAM, QD
     Route: 042
     Dates: start: 20240401, end: 20240423
  2. FUROSEMIDE [Suspect]
     Active Substance: FUROSEMIDE
     Indication: Product used for unknown indication
     Dosage: UNK
     Route: 042
     Dates: start: 20240415, end: 20240424
  3. INVANZ [Suspect]
     Active Substance: ERTAPENEM SODIUM
     Indication: Postoperative wound infection
     Dosage: 1 GRAM, QD
     Route: 042
     Dates: start: 20240414, end: 20240423
  4. LINEZOLID [Suspect]
     Active Substance: LINEZOLID
     Indication: Postoperative wound infection
     Dosage: 600 MILLIGRAM, Q12H
     Route: 042
     Dates: start: 20240412, end: 20240425
  5. PIPERACILLIN SODIUM\TAZOBACTAM SODIUM [Suspect]
     Active Substance: PIPERACILLIN SODIUM\TAZOBACTAM SODIUM
     Indication: Postoperative wound infection
     Dosage: 12 GRAM, QD
     Route: 042
     Dates: start: 20240401, end: 20240411
  6. FLUCONAZOLE [Concomitant]
     Active Substance: FLUCONAZOLE
     Indication: Postoperative wound infection
     Dosage: UNK
     Route: 065
     Dates: start: 20240417
  7. LOVENOX [Concomitant]
     Active Substance: ENOXAPARIN SODIUM
     Indication: Product used for unknown indication
     Dosage: UNK
     Route: 058
     Dates: start: 20240402

REACTIONS (4)
  - Platelet count decreased [Recovered/Resolved]
  - Band neutrophil count decreased [Recovered/Resolved]
  - Neutropenia [Recovered/Resolved]
  - Thrombocytopenia [Recovered/Resolved]

NARRATIVE: CASE EVENT DATE: 20240402
